FAERS Safety Report 9795562 (Version 1)
Quarter: 2014Q1

REPORT INFORMATION
  Report Type: Spontaneous
  Country: US (occurrence: US)
  Receive Date: 20140103
  Receipt Date: 20140103
  Transmission Date: 20141002
  Serious: Yes (Other)
  Sender: FDA-Public Use
  Company Number: US-BAYER-2014-000780

PATIENT
  Age: 30 Year
  Sex: Female
  Weight: 67.12 kg

DRUGS (6)
  1. YAZ [Suspect]
  2. OCELLA [Suspect]
  3. LEVOTHYROXINE [Concomitant]
     Indication: HYPOTHYROIDISM
     Dosage: 88 ?G, UNK
     Route: 048
     Dates: start: 20110120
  4. IBUPROFEN [Concomitant]
     Indication: PAIN
     Dosage: 800 MG, UNK
     Route: 048
     Dates: start: 20110314
  5. SYNTHROID [Concomitant]
  6. PERCOCET [Concomitant]

REACTIONS (1)
  - Deep vein thrombosis [Recovered/Resolved]
